FAERS Safety Report 7493017-4 (Version None)
Quarter: 2011Q2

REPORT INFORMATION
  Report Type: 
  Country: None (occurrence: None)
  Receive Date: 20110520
  Receipt Date: 20110510
  Transmission Date: 20111010
  Serious: Yes (Hospitalization, Disabling, Other)
  Sender: FDA-Public Use
  Company Number: FR-JNJFOC-20110411269

PATIENT
  Age: 85 Year
  Sex: Male

DRUGS (10)
  1. RENAGEL [Concomitant]
     Route: 065
  2. AMIODARONE HCL [Concomitant]
     Route: 065
  3. LEVOFLOXACIN [Suspect]
     Indication: BRONCHITIS
     Route: 048
     Dates: start: 20110121, end: 20110121
  4. OXAZEPAM [Concomitant]
     Route: 065
  5. KAYEXALATE [Concomitant]
     Route: 065
  6. AERIUS [Concomitant]
     Route: 065
  7. PREVISCAN (FLUINDIONE) [Concomitant]
     Route: 065
  8. ALL OTHER THERAPEUTIC PRODUCT [Concomitant]
     Route: 065
  9. LEVOFLOXACIN [Suspect]
     Route: 048
     Dates: start: 20110122, end: 20110122
  10. ATORVASTATIN CALCIUM [Concomitant]
     Route: 065

REACTIONS (2)
  - TENDON RUPTURE [None]
  - GAIT DISTURBANCE [None]
